FAERS Safety Report 6936441-8 (Version None)
Quarter: 2010Q3

REPORT INFORMATION
  Report Type: 
  Country: None (occurrence: None)
  Receive Date: 20100818
  Receipt Date: 20100809
  Transmission Date: 20110219
  Serious: Yes (Other)
  Sender: FDA-Public Use
  Company Number: 2010US002698

PATIENT
  Age: 26 Year
  Sex: Female

DRUGS (3)
  1. PROGRAF [Suspect]
     Indication: RENAL TRANSPLANT
     Dosage: ORAL
     Route: 048
     Dates: start: 20090923
  2. [NO SUSPECT PRODUCT] ([NO INGREDIENT]) FORMULATION UNKNOWN [Suspect]
     Indication: RENAL TRANSPLANT
  3. CIPRO [Concomitant]

REACTIONS (5)
  - ARTHRALGIA [None]
  - CERVICITIS [None]
  - HAEMORRHAGIC OVARIAN CYST [None]
  - NAUSEA [None]
  - POLLAKIURIA [None]
